FAERS Safety Report 8322125-0 (Version None)
Quarter: 2012Q2

REPORT INFORMATION
  Report Type: 
  Country: None (occurrence: None)
  Receive Date: 20120426
  Receipt Date: 20120404
  Transmission Date: 20120825
  Serious: No
  Sender: FDA-Public Use
  Company Number: 2135225-2012-00039

PATIENT
  Age: 59 Year
  Sex: Male

DRUGS (1)
  1. AETHOXYSKLEROL [Suspect]
     Indication: SCLEROTHERAPY
     Dosage: 8-10ML IN GSV, IV    4-8ML IN SSV, IV
     Route: 042

REACTIONS (3)
  - POST PROCEDURAL COMPLICATION [None]
  - THROMBOPHLEBITIS [None]
  - VENOUS STENOSIS [None]
